FAERS Safety Report 18659224 (Version 2)
Quarter: 2021Q1

REPORT INFORMATION
  Report Type: Spontaneous
  Country: IT (occurrence: IT)
  Receive Date: 20201224
  Receipt Date: 20210106
  Transmission Date: 20210419
  Serious: Yes (Hospitalization, Other)
  Sender: FDA-Public Use
  Company Number: IT-SAMSUNG BIOEPIS-SB-2020-37908

PATIENT
  Age: 62 Year
  Sex: Male

DRUGS (3)
  1. MESAVANCOL [Concomitant]
     Active Substance: MESALAMINE
     Dosage: PROLONGED RELEASE GASTRO?RESISTANT TABLET
     Route: 065
  2. FLIXABI [Suspect]
     Active Substance: INFLIXIMAB
     Indication: COLITIS ULCERATIVE
     Route: 042
     Dates: start: 20200731, end: 20201104
  3. MESAVANCOL [Concomitant]
     Active Substance: MESALAMINE
     Indication: PRODUCT USED FOR UNKNOWN INDICATION
     Dosage: PROLONGED RELEASE GASTRO?RESISTANT TABLET
     Route: 065

REACTIONS (3)
  - Hyperhidrosis [Recovered/Resolved]
  - Flushing [Recovered/Resolved]
  - Malaise [Recovered/Resolved]

NARRATIVE: CASE EVENT DATE: 20201104
